FAERS Safety Report 4698470-7 (Version None)
Quarter: 2005Q2

REPORT INFORMATION
  Report Type: 
  Country: None (occurrence: None)
  Receive Date: 20050621
  Receipt Date: 20050606
  Transmission Date: 20051028
  Serious: Yes (Other)
  Sender: FDA-Public Use
  Company Number: GBS050617588

PATIENT
  Age: 41 Year
  Sex: Female

DRUGS (3)
  1. FLUOXETINE HCL [Suspect]
     Indication: DEPRESSION
     Dosage: 40 MG
     Dates: start: 20050313, end: 20050508
  2. BUSPIRONE HCL [Concomitant]
  3. ZOPICLONE [Concomitant]

REACTIONS (3)
  - AGITATION [None]
  - IMPULSIVE BEHAVIOUR [None]
  - SUICIDE ATTEMPT [None]
